FAERS Safety Report 18486065 (Version 3)
Quarter: 2020Q4

REPORT INFORMATION
  Report Type: Report from Study
  Country: DK (occurrence: DK)
  Receive Date: 20201110
  Receipt Date: 20201229
  Transmission Date: 20210114
  Serious: Yes (Hospitalization)
  Sender: FDA-Public Use
  Company Number: DK-ALNYLAM PHARMACEUTICALS, INC.-ALN-2020-001816

PATIENT

DRUGS (7)
  1. POTASSIUM CHLORIDE. [Concomitant]
     Active Substance: POTASSIUM CHLORIDE
     Indication: CARDIAC DISORDER
     Dosage: 1500 MILLIGRAM, QD
     Route: 048
     Dates: start: 20150330
  2. ALN-TTR02 [Suspect]
     Active Substance: PATISIRAN SODIUM
     Indication: AMYLOIDOSIS
     Dosage: 0.3 MILLIGRAM/KILOGRAM, Q3W
     Route: 042
     Dates: start: 20200623
  3. FUROSEMID [Concomitant]
     Active Substance: FUROSEMIDE
     Indication: CARDIAC DISORDER
     Dosage: 120 MILLIGRAM, QD
     Route: 048
     Dates: start: 20200806
  4. ATORVASTATIN [Concomitant]
     Active Substance: ATORVASTATIN
     Indication: CARDIAC DISORDER
     Dosage: 20 MILLIGRAM, QD
     Route: 048
     Dates: start: 20190906
  5. CLOPIDOGREL [Concomitant]
     Active Substance: CLOPIDOGREL BISULFATE
     Indication: PROPHYLAXIS
     Dosage: 75 MILLIGRAM, QD
     Route: 048
     Dates: start: 20190903
  6. FUROSEMID [Concomitant]
     Active Substance: FUROSEMIDE
     Dosage: 120 UNK
     Route: 048
     Dates: start: 20150320, end: 20200805
  7. PARACETAMOL [Concomitant]
     Active Substance: ACETAMINOPHEN
     Indication: HIP ARTHROPLASTY
     Dosage: 1330 MILLIGRAM, PRN
     Route: 048
     Dates: start: 20170112, end: 2020

REACTIONS (1)
  - Infusion related reaction [Recovered/Resolved]

NARRATIVE: CASE EVENT DATE: 20201006
